FAERS Safety Report 5173795-X (Version None)
Quarter: 2006Q4

REPORT INFORMATION
  Report Type: 
  Country: None (occurrence: None)
  Receive Date: 20061214
  Receipt Date: 20061208
  Transmission Date: 20070319
  Serious: Yes (Death, Hospitalization)
  Sender: FDA-Public Use
  Company Number: US-GLAXOSMITHKLINE-A0630969A

PATIENT
  Age: 75 Year
  Sex: Male

DRUGS (2)
  1. DIGOXIN [Suspect]
     Indication: POISONING DELIBERATE
     Route: 065
  2. POLYPHARMACY [Suspect]

REACTIONS (6)
  - CARDIAC FAILURE CONGESTIVE [None]
  - DEATH [None]
  - DRUG INTERACTION [None]
  - MYOCARDIAL INFARCTION [None]
  - POISONING DELIBERATE [None]
  - THERAPEUTIC AGENT TOXICITY [None]
